FAERS Safety Report 11127157 (Version 2)
Quarter: 2015Q3

REPORT INFORMATION
  Report Type: Spontaneous
  Country: US (occurrence: US)
  Receive Date: 20150521
  Receipt Date: 20150903
  Transmission Date: 20151125
  Serious: Yes (Other)
  Sender: FDA-Public Use
  Company Number: US-AMGEN-USASP2015048321

PATIENT
  Age: 35 Year
  Sex: Female
  Weight: 87.98 kg

DRUGS (3)
  1. FERROUS                            /00023501/ [Concomitant]
     Dosage: 1000 MUG, QD
     Dates: start: 201502
  2. ENBREL [Suspect]
     Active Substance: ETANERCEPT
     Indication: RHEUMATOID ARTHRITIS
     Dosage: UNK
     Route: 065
     Dates: start: 20130720
  3. PREDNISONE. [Concomitant]
     Active Substance: PREDNISONE
     Dosage: 30 MG, QD
     Dates: start: 20150602

REACTIONS (4)
  - Pregnancy [Unknown]
  - Anaemia [Unknown]
  - Back pain [Not Recovered/Not Resolved]
  - High risk pregnancy [Unknown]

NARRATIVE: CASE EVENT DATE: 2015
